FAERS Safety Report 9943606 (Version 2)
Quarter: 2014Q1

REPORT INFORMATION
  Report Type: Report from Study
  Country: US (occurrence: US)
  Receive Date: 20140303
  Receipt Date: 20140303
  Transmission Date: 20141002
  Serious: No
  Sender: FDA-Public Use
  Company Number: US-ABBVIE-12P-163-1027786-00

PATIENT
  Age: 27 Year
  Sex: Female
  Weight: 49.03 kg

DRUGS (6)
  1. HUMIRA [Suspect]
     Indication: CROHN^S DISEASE
     Route: 058
     Dates: start: 2009, end: 201212
  2. HUMIRA [Suspect]
     Route: 058
     Dates: start: 20121212
  3. CONTRACEPTIVES [Concomitant]
     Indication: CONTRACEPTION
  4. CALCIUM [Concomitant]
     Indication: BONE DISORDER
  5. VITAMIN B-12 [Concomitant]
     Indication: ASTHENIA
  6. IRON [Concomitant]
     Indication: ANAEMIA

REACTIONS (1)
  - Crohn^s disease [Recovering/Resolving]
